FAERS Safety Report 5775655-X (Version None)
Quarter: 2008Q2

REPORT INFORMATION
  Report Type: 
  Country: None (occurrence: None)
  Receive Date: 20080617
  Receipt Date: 20080610
  Transmission Date: 20081010
  Serious: Yes (Hospitalization, Other)
  Sender: FDA-Public Use
  Company Number: US-PFIZER INC-2008049282

PATIENT
  Sex: Female
  Weight: 48.1 kg

DRUGS (11)
  1. XANAX [Suspect]
     Indication: DEPRESSION
     Dates: start: 20010101, end: 20070501
  2. GEODON [Suspect]
     Indication: STRESS
     Dosage: DAILY DOSE:20MG
     Dates: start: 20080520, end: 20080530
  3. ZOLOFT [Suspect]
     Indication: SERUM SEROTONIN DECREASED
  4. ZOLOFT [Suspect]
     Indication: DEPRESSION
  5. EFFEXOR [Suspect]
     Indication: SERUM SEROTONIN DECREASED
  6. EFFEXOR [Suspect]
     Indication: DEPRESSION
  7. ALL OTHER THERAPEUTIC PRODUCTS [Concomitant]
  8. OXYCONTIN [Concomitant]
  9. VICODIN [Concomitant]
  10. VITAMINS [Concomitant]
  11. TRAZODONE HCL [Concomitant]

REACTIONS (14)
  - ANXIETY [None]
  - APPARENT DEATH [None]
  - CONVULSION [None]
  - EAR INFECTION [None]
  - FEELING ABNORMAL [None]
  - FEELING HOT [None]
  - HEADACHE [None]
  - HYPOAESTHESIA [None]
  - ILLUSION [None]
  - NEGATIVISM [None]
  - PAIN [None]
  - PRURITUS [None]
  - PYREXIA [None]
  - SUICIDAL IDEATION [None]
